FAERS Safety Report 8281591-X (Version None)
Quarter: 2012Q2

REPORT INFORMATION
  Report Type: 
  Country: None (occurrence: None)
  Receive Date: 20120413
  Receipt Date: 20120409
  Transmission Date: 20120825
  Serious: Yes (Hospitalization)
  Sender: FDA-Public Use
  Company Number: GR-US-EMD SERONO, INC.-7124819

PATIENT
  Age: 38 Year
  Sex: Female

DRUGS (2)
  1. REBIF [Suspect]
     Indication: MULTIPLE SCLEROSIS
     Dates: start: 20100401, end: 20111210
  2. IRON SUPPLEMENT [Concomitant]
     Indication: IRON DEFICIENCY ANAEMIA
     Dates: start: 20091001

REACTIONS (1)
  - POLYP COLORECTAL [None]
